FAERS Safety Report 6243250-4 (Version None)
Quarter: 2009Q2

REPORT INFORMATION
  Report Type: 
  Country: None (occurrence: None)
  Receive Date: 20090622
  Receipt Date: 20090605
  Transmission Date: 20091009
  Serious: Yes (Hospitalization)
  Sender: FDA-Public Use
  Company Number: F03200900060

PATIENT
  Age: 74 Year
  Sex: Male

DRUGS (11)
  1. FLUDARABINE PHOSPHATE [Suspect]
     Indication: CHRONIC LYMPHOCYTIC LEUKAEMIA
     Dosage: ORAL
     Route: 048
  2. MABTHERA - (RITUXIMAB) - UNKNOWN - UNIT DOSE : UNKNOWN [Suspect]
     Indication: CHRONIC LYMPHOCYTIC LEUKAEMIA
     Dosage: INTRAVENOUS NOS
     Route: 042
     Dates: start: 20090406
  3. CYCLOPHOSPHAMIDE [Suspect]
     Indication: CHRONIC LYMPHOCYTIC LEUKAEMIA
  4. METOPROLOL SUCCINATE [Concomitant]
  5. METFORMIN HCL [Concomitant]
  6. ASPIRIN [Concomitant]
  7. AMLODIPINE [Concomitant]
  8. ZOCOR [Concomitant]
  9. HYDROCORTISONE [Concomitant]
  10. ACETAMINOPHEN [Concomitant]
  11. PHENERGAN HCL [Concomitant]

REACTIONS (5)
  - CONFUSIONAL STATE [None]
  - FATIGUE [None]
  - FEELING HOT [None]
  - PARALYSIS [None]
  - PYREXIA [None]
